FAERS Safety Report 9374024 (Version 1)
Quarter: 2013Q2

REPORT INFORMATION
  Report Type: Spontaneous
  Country: US (occurrence: None)
  Receive Date: 20130627
  Receipt Date: 20130627
  Transmission Date: 20140414
  Serious: Yes (Life-Threatening, Hospitalization, Disabling, Other)
  Sender: FDA-Public Use
  Company Number: None

PATIENT
  Age: 51 Year
  Sex: Male
  Weight: 104.33 kg

DRUGS (1)
  1. SPIRIVA [Suspect]
     Indication: CHRONIC OBSTRUCTIVE PULMONARY DISEASE
     Dosage: 1 DOSE PER DAY INHAL
     Route: 055
     Dates: start: 20070701, end: 20130201

REACTIONS (5)
  - Prostate cancer [None]
  - Prostatic disorder [None]
  - Prostatic specific antigen increased [None]
  - Osteonecrosis [None]
  - Eye disorder [None]
